FAERS Safety Report 6367802-6 (Version None)
Quarter: 2009Q3

REPORT INFORMATION
  Report Type: 
  Country: None (occurrence: None)
  Receive Date: 20090921
  Receipt Date: 20090911
  Transmission Date: 20100115
  Serious: Yes (Death, Other)
  Sender: FDA-Public Use
  Company Number: US-BAXTER-2009BH013651

PATIENT
  Age: 61 Year
  Sex: Male
  Weight: 65 kg

DRUGS (42)
  1. HEPARIN SODIUM INJECTION [Suspect]
     Indication: DRUG USE FOR UNKNOWN INDICATION
     Route: 058
     Dates: start: 20080705, end: 20080705
  2. HEPARIN SODIUM INJECTION [Suspect]
     Route: 058
     Dates: start: 20080706, end: 20080706
  3. HEPARIN SODIUM INJECTION [Suspect]
     Route: 058
     Dates: start: 20080706, end: 20080706
  4. HEPARIN SODIUM INJECTION [Suspect]
     Route: 058
     Dates: start: 20080706, end: 20080706
  5. HEPARIN SODIUM INJECTION [Suspect]
     Route: 058
     Dates: start: 20080707, end: 20080707
  6. HEPARIN SODIUM INJECTION [Suspect]
     Route: 058
     Dates: start: 20080707, end: 20080707
  7. HEPARIN SODIUM INJECTION [Suspect]
     Route: 058
     Dates: start: 20080707, end: 20080707
  8. HEPARIN SODIUM INJECTION [Suspect]
     Route: 058
     Dates: start: 20080708, end: 20080708
  9. HEPARIN SODIUM INJECTION [Suspect]
     Route: 058
     Dates: start: 20080708, end: 20080708
  10. HEPARIN SODIUM INJECTION [Suspect]
     Route: 058
     Dates: start: 20080708, end: 20080708
  11. HEPARIN SODIUM INJECTION [Suspect]
     Route: 058
     Dates: start: 20080709, end: 20080709
  12. HEPARIN SODIUM INJECTION [Suspect]
     Route: 058
     Dates: start: 20080709, end: 20080709
  13. HEPARIN SODIUM INJECTION [Suspect]
     Route: 058
     Dates: start: 20080709, end: 20080709
  14. HEPARIN SODIUM INJECTION [Suspect]
     Route: 058
     Dates: start: 20080711, end: 20080711
  15. HEPARIN SODIUM INJECTION [Suspect]
     Route: 058
     Dates: start: 20080711, end: 20080711
  16. HEPARIN SODIUM INJECTION [Suspect]
     Route: 058
     Dates: start: 20080711, end: 20080711
  17. HEPARIN SODIUM INJECTION [Suspect]
     Route: 058
     Dates: start: 20080712, end: 20080712
  18. HEPARIN SODIUM INJECTION [Suspect]
     Route: 058
     Dates: start: 20080712, end: 20080712
  19. HEPARIN SODIUM INJECTION [Suspect]
     Route: 058
     Dates: start: 20080712, end: 20080712
  20. HEPARIN SODIUM INJECTION [Suspect]
     Route: 058
     Dates: start: 20080713, end: 20080713
  21. HEPARIN SODIUM INJECTION [Suspect]
     Route: 058
     Dates: start: 20080713, end: 20080713
  22. HEPARIN SODIUM INJECTION [Suspect]
     Route: 058
     Dates: start: 20080713, end: 20080713
  23. HEPARIN SODIUM INJECTION [Suspect]
     Route: 058
     Dates: start: 20080714, end: 20080714
  24. HEPARIN SODIUM INJECTION [Suspect]
     Route: 058
     Dates: start: 20080714, end: 20080714
  25. HEPARIN SODIUM INJECTION [Suspect]
     Route: 058
     Dates: start: 20080714, end: 20080714
  26. HEPARIN SODIUM INJECTION [Suspect]
     Route: 058
     Dates: start: 20080715, end: 20080715
  27. PREDNISONE [Concomitant]
     Indication: DRUG USE FOR UNKNOWN INDICATION
     Route: 065
  28. PLAQUENIL [Concomitant]
     Indication: DRUG USE FOR UNKNOWN INDICATION
     Route: 065
  29. ULTRAM [Concomitant]
     Indication: DRUG USE FOR UNKNOWN INDICATION
     Route: 065
  30. PAXIL [Concomitant]
     Indication: DRUG USE FOR UNKNOWN INDICATION
     Route: 065
  31. MULTI-VITAMINS [Concomitant]
     Indication: DRUG USE FOR UNKNOWN INDICATION
     Route: 065
  32. ST MARY'S THISTLE [Concomitant]
     Indication: DRUG USE FOR UNKNOWN INDICATION
     Route: 065
  33. ASCORBIC ACID [Concomitant]
     Indication: DRUG USE FOR UNKNOWN INDICATION
     Route: 065
  34. VITAMIN D [Concomitant]
     Indication: DRUG USE FOR UNKNOWN INDICATION
     Route: 065
  35. CALTRATE + D [Concomitant]
     Indication: DRUG USE FOR UNKNOWN INDICATION
     Route: 065
  36. ASPIRIN [Concomitant]
     Indication: DRUG USE FOR UNKNOWN INDICATION
     Route: 065
  37. LOVAZA [Concomitant]
     Indication: DRUG USE FOR UNKNOWN INDICATION
     Route: 065
  38. DORIZONE [Concomitant]
     Indication: DRUG USE FOR UNKNOWN INDICATION
     Route: 065
  39. PAREXITINE HCL [Concomitant]
     Indication: DRUG USE FOR UNKNOWN INDICATION
     Route: 065
  40. METHOTREXATE [Concomitant]
     Indication: DRUG USE FOR UNKNOWN INDICATION
     Route: 065
  41. HYDROXYCHLOROQUINE [Concomitant]
     Indication: DRUG USE FOR UNKNOWN INDICATION
     Route: 065
  42. VITAMINS, OTHER COMBINATIONS [Concomitant]
     Indication: DRUG USE FOR UNKNOWN INDICATION
     Route: 065

REACTIONS (5)
  - CHRONIC OBSTRUCTIVE PULMONARY DISEASE [None]
  - PLATELET COUNT DECREASED [None]
  - PNEUMONIA [None]
  - PNEUMOTHORAX [None]
  - RESPIRATORY FAILURE [None]
